FAERS Safety Report 6526255-5 (Version None)
Quarter: 2009Q4

REPORT INFORMATION
  Report Type: 
  Country: None (occurrence: None)
  Receive Date: 20091228
  Receipt Date: 20091217
  Transmission Date: 20100525
  Serious: Yes (Hospitalization)
  Sender: FDA-Public Use
  Company Number: 235522K09USA

PATIENT
  Age: 37 Year
  Sex: Female
  Weight: 84 kg

DRUGS (7)
  1. REBIF [Suspect]
     Indication: MULTIPLE SCLEROSIS
     Dosage: 44 MCG, 3 IN 1 WEEKS, SUBCUTANEOUS
     Route: 058
     Dates: start: 20090309
  2. DILANTIN [Concomitant]
  3. LORTAB (VICODIN) [Concomitant]
  4. KLONOPIN [Concomitant]
  5. AMITRIPTYLINE HYDROCHLORIDE [Concomitant]
  6. SINGULAIR [Concomitant]
  7. CARISOPRODOL [Concomitant]

REACTIONS (4)
  - ASTHMA [None]
  - DYSGEUSIA [None]
  - IMMOBILE [None]
  - NASAL CONGESTION [None]
